FAERS Safety Report 5685072-9 (Version None)
Quarter: 2008Q1

REPORT INFORMATION
  Report Type: 
  Country: None (occurrence: None)
  Receive Date: 20080328
  Receipt Date: 20080324
  Transmission Date: 20080703
  Serious: Yes (Death)
  Sender: FDA-Public Use
  Company Number: US-ABBOTT-08P-163-0443866-00

PATIENT
  Sex: Male
  Weight: 59.02 kg

DRUGS (1)
  1. DEPAKOTE ER 500MG TABLETS [Suspect]
     Indication: CONVULSION
     Route: 048

REACTIONS (1)
  - OVERDOSE [None]
